FAERS Safety Report 5050741-0 (Version None)
Quarter: 2006Q3

REPORT INFORMATION
  Report Type: 
  Country: None (occurrence: None)
  Receive Date: 20060707
  Receipt Date: 20060623
  Transmission Date: 20061208
  Serious: Yes (Death)
  Sender: FDA-Public Use
  Company Number: S06-UKI-02647-01

PATIENT
  Age: 62 Year
  Sex: Male

DRUGS (6)
  1. CITALOPRAM HYDROBROMIDE [Suspect]
     Indication: DEPRESSED MOOD
     Dosage: 20 MG QD PO
     Route: 048
     Dates: start: 20060117
  2. CETOMACROGOL 1000 [Concomitant]
  3. CODEINE PHOSPHATE [Concomitant]
  4. CODEINE PHOSPHATE HEMIHYDRATE [Concomitant]
  5. ACETAMINOPHEN [Concomitant]
  6. PARACETAMOL DC [Concomitant]

REACTIONS (3)
  - COMPLETED SUICIDE [None]
  - OSTEOARTHRITIS [None]
  - SUICIDAL IDEATION [None]
